FAERS Safety Report 8904219 (Version 2)
Quarter: 2012Q4

REPORT INFORMATION
  Report Type: 
  Country: US (occurrence: US)
  Receive Date: 20121112
  Receipt Date: 20121204
  Transmission Date: 20130627
  Serious: No
  Sender: FDA-Public Use
  Company Number: US-PFIZER INC-2012281080

PATIENT
  Age: 67 Year
  Sex: Female

DRUGS (9)
  1. LYRICA [Suspect]
     Dosage: 75 mg, UNK (2m. 2L. 2D and 4@ Bedtime)
  2. ADVAIR [Concomitant]
     Dosage: 260/50
  3. SPIRIVA [Concomitant]
     Dosage: 18 ug
  4. LOVASTATIN [Concomitant]
     Dosage: 20 mg
  5. TRICOR [Concomitant]
     Dosage: 45 mg
  6. CLARINEX [Concomitant]
     Dosage: 5 mg
  7. OMEPRAZOLE [Concomitant]
     Dosage: 20 mg
  8. HYDROCHLOROTHIAZIDE [Concomitant]
     Dosage: 12.5
  9. ASPIRIN [Concomitant]
     Dosage: 80 mg

REACTIONS (3)
  - Pain [Unknown]
  - Dysstasia [Unknown]
  - Nausea [Unknown]
